FAERS Safety Report 11569645 (Version 2)
Quarter: 2016Q1

REPORT INFORMATION
  Report Type: Spontaneous
  Country: US (occurrence: US)
  Receive Date: 20150929
  Receipt Date: 20160324
  Transmission Date: 20160525
  Serious: No
  Sender: FDA-Public Use
  Company Number: US-SHIONOGI, INC-2015000620

PATIENT
  Sex: Female

DRUGS (3)
  1. OSPHENA [Suspect]
     Active Substance: OSPEMIFENE
     Indication: VULVOVAGINAL DRYNESS
  2. OSPHENA [Suspect]
     Active Substance: OSPEMIFENE
     Indication: VULVOVAGINAL BURNING SENSATION
     Dosage: 60 MG, ONCE A DAY
     Route: 048
     Dates: start: 201411
  3. OSPHENA [Suspect]
     Active Substance: OSPEMIFENE
     Indication: OFF LABEL USE

REACTIONS (3)
  - Therapeutic response unexpected [Unknown]
  - No adverse event [Unknown]
  - Off label use [Unknown]
